FAERS Safety Report 10270019 (Version 1)
Quarter: 2014Q2

REPORT INFORMATION
  Report Type: Spontaneous
  Country: US (occurrence: None)
  Receive Date: 20140625
  Receipt Date: 20140625
  Transmission Date: 20141212
  Serious: Yes (Other)
  Sender: FDA-Public Use
  Company Number: 2014US00629

PATIENT
  Sex: 0

DRUGS (4)
  1. TOPIRAMATE [Suspect]
     Indication: GLUCOSE TOLERANCE IMPAIRED
     Dosage: 45 MG, FOR 108 WEEKS
  2. TOPIRAMATE [Suspect]
     Indication: METABOLIC SYNDROME
     Dosage: 45 MG, FOR 108 WEEKS
  3. PHENTERMINE (PHENTERMINE) [Suspect]
     Indication: GLUCOSE TOLERANCE IMPAIRED
     Dosage: 7.5 MG, FOR 108 WEEKS
  4. PHENTERMINE (PHENTERMINE) [Suspect]
     Indication: METABOLIC SYNDROME
     Dosage: 7.5 MG, FOR 108 WEEKS

REACTIONS (1)
  - Myocardial infarction [None]
